FAERS Safety Report 19759177 (Version 1)
Quarter: 2021Q3

REPORT INFORMATION
  Report Type: Spontaneous
  Country: DE (occurrence: DE)
  Receive Date: 20210827
  Receipt Date: 20210827
  Transmission Date: 20211014
  Serious: Yes (Hospitalization, Other)
  Sender: FDA-Public Use
  Company Number: DE-009507513-2108DEU006084

PATIENT
  Age: 83 Year
  Sex: Female
  Weight: 76.4 kg

DRUGS (11)
  1. ASPIRIN. [Concomitant]
     Active Substance: ASPIRIN
     Dosage: 100 MILLIGRAM, QD, 1 ? 0 ? 0 ? 0; LONG?TERM MEDICATION
  2. LEVEMIR [Concomitant]
     Active Substance: INSULIN DETEMIR
     Dosage: 28 INTERNATIONAL UNIT, QD, 18 ? 0 ? 10 ? 0, LONG?TERM MEDICATION
  3. RAMIPRIL. [Concomitant]
     Active Substance: RAMIPRIL
     Dosage: 10 MILLIGRAM, QD, 1 ? 0 ? 1 ? 0
  4. PANTOPRAZOL AAA [Concomitant]
     Dosage: UNK, PRN (AS NEEDED FOR HEARTBURN OR STOMACH PAIN)
  5. UDCA [Concomitant]
     Active Substance: URSODIOL
     Dosage: 500 MILLIGRAM, QD, 1 ? 0 ? 1 ? 0; LONG?TERM MEDICATION
  6. METFORMIN [Concomitant]
     Active Substance: METFORMIN HYDROCHLORIDE
     Dosage: 1000 MILLIGRAM, QD, 1 ? 0 ? 1 ? 0; STRENGTH: 500 HEUMANN
  7. AMLODIPINE [Concomitant]
     Active Substance: AMLODIPINE BESYLATE
     Dosage: 5 MILLIGRAM, QD, 0 ? 0 ? 1 ? 0
  8. BISOPROLOL [Concomitant]
     Active Substance: BISOPROLOL
     Dosage: 10 MILLIGRAM, QD, 1 ? 0 ? 1 ? 0, LONG TERM MEDICATION
  9. JARDIANCE [Concomitant]
     Active Substance: EMPAGLIFLOZIN
     Dosage: 10 MILLIGRAM, QD, 1 ? 0 ? 0 ? 0
  10. SIMVASTATIN DURA [Concomitant]
     Active Substance: SIMVASTATIN
     Dosage: 20 MILLIGRAM, QD, 0 ? 0 ? 0 ? 1
  11. XELEVIA [Suspect]
     Active Substance: SITAGLIPTIN PHOSPHATE
     Indication: TYPE 2 DIABETES MELLITUS
     Dosage: 100 MILLIGRAM, QD, 1?0?0
     Dates: start: 2018, end: 202106

REACTIONS (2)
  - Dermatitis bullous [Not Recovered/Not Resolved]
  - Pruritus [Not Recovered/Not Resolved]

NARRATIVE: CASE EVENT DATE: 2021
